FAERS Safety Report 15589205 (Version 1)
Quarter: 2018Q4

REPORT INFORMATION
  Report Type: Spontaneous
  Country: NL (occurrence: NL)
  Receive Date: 20181106
  Receipt Date: 20181106
  Transmission Date: 20190205
  Serious: Yes (Other)
  Sender: FDA-Public Use
  Company Number: NL-ACCORD-091173

PATIENT
  Age: 74 Year
  Sex: Male

DRUGS (7)
  1. NAPROXEN. [Concomitant]
     Active Substance: NAPROXEN
     Dosage: 500MG, ZN
  2. OMEPRAZOLE. [Concomitant]
     Active Substance: OMEPRAZOLE
     Dosage: 40MG, 1X/D
  3. METHOTREXATE. [Suspect]
     Active Substance: METHOTREXATE
     Indication: RHEUMATOID ARTHRITIS
     Dosage: 25MG, 1X/W
     Dates: start: 20150626, end: 20180112
  4. SULFASALAZINE. [Concomitant]
     Active Substance: SULFASALAZINE
     Dosage: 1000MG, 2X/D
     Dates: start: 20161125
  5. FOLIUMZUUR [Concomitant]
     Active Substance: FOLIC ACID
     Dosage: 5MG, ACCORDING TO SCHEDULE
     Dates: start: 20100422
  6. D-CURE [Concomitant]
     Active Substance: CHOLECALCIFEROL
     Dosage: 25000IE, 1X/2W
  7. FLUTICASONE PROPIONATE/SALMETEROL XINAFOATE [Concomitant]
     Dosage: UNKNOWN, UNKNOWN

REACTIONS (1)
  - Respiratory tract infection [Recovering/Resolving]

NARRATIVE: CASE EVENT DATE: 20171228
